FAERS Safety Report 15916300 (Version 2)
Quarter: 2019Q1

REPORT INFORMATION
  Report Type: Report from Study
  Country: CA (occurrence: CA)
  Receive Date: 20190204
  Receipt Date: 20190219
  Transmission Date: 20190417
  Serious: Yes (Hospitalization, Other)
  Sender: FDA-Public Use
  Company Number: CA-UCBSA-2019003843

PATIENT
  Age: 43 Year
  Sex: Female
  Weight: 55.4 kg

DRUGS (1)
  1. CERTOLIZUMAB PEGOL AUTOCLICKS [Suspect]
     Active Substance: CERTOLIZUMAB PEGOL
     Indication: RHEUMATOID ARTHRITIS
     Dosage: 200 MG, EV 2 WEEKS(QOW)
     Route: 058
     Dates: start: 20171110, end: 20181123

REACTIONS (2)
  - Rhinitis [Recovered/Resolved]
  - Post procedural infection [Unknown]

NARRATIVE: CASE EVENT DATE: 201811
